FAERS Safety Report 16460464 (Version 1)
Quarter: 2019Q2

REPORT INFORMATION
  Report Type: Spontaneous
  Country: DK (occurrence: DK)
  Receive Date: 20190620
  Receipt Date: 20190620
  Transmission Date: 20190711
  Serious: Yes (Life-Threatening, Hospitalization, Other)
  Sender: FDA-Public Use
  Company Number: DK-MYLANLABS-2019M1057573

PATIENT
  Age: 42 Year
  Sex: Male

DRUGS (2)
  1. VERAPAMIL [Suspect]
     Active Substance: VERAPAMIL HYDROCHLORIDE
     Indication: PRODUCT USED FOR UNKNOWN INDICATION
     Dosage: 100 EXTENDED RELEASE TABLETS
     Route: 048
  2. ENALAPRIL [Suspect]
     Active Substance: ENALAPRIL
     Indication: PRODUCT USED FOR UNKNOWN INDICATION
     Dosage: 100 TABLETS
     Route: 048

REACTIONS (13)
  - Mental status changes [Unknown]
  - Blood pressure decreased [Recovering/Resolving]
  - Rhythm idioventricular [Recovering/Resolving]
  - Suicide attempt [Recovering/Resolving]
  - Pulmonary oedema [Unknown]
  - Respiratory failure [Unknown]
  - Intentional overdose [Recovering/Resolving]
  - Atrioventricular block complete [Recovering/Resolving]
  - Hypervolaemia [Unknown]
  - Electrocardiogram abnormal [Recovering/Resolving]
  - Hyperhidrosis [Unknown]
  - Bezoar [Unknown]
  - Anuria [Unknown]
